FAERS Safety Report 15805714 (Version 1)
Quarter: 2019Q1

REPORT INFORMATION
  Report Type: Report from Study
  Country: EG (occurrence: EG)
  Receive Date: 20190110
  Receipt Date: 20190110
  Transmission Date: 20190417
  Serious: Yes (Other)
  Sender: FDA-Public Use
  Company Number: EG-SA-2019SA004120

PATIENT
  Age: 70 Year
  Sex: Male

DRUGS (2)
  1. GLIMEPIRIDE. [Suspect]
     Active Substance: GLIMEPIRIDE
     Indication: DIABETES MELLITUS
     Dosage: 4 MG, QD
     Route: 048
     Dates: start: 20070101, end: 20170101
  2. CIDOPHAGE [Concomitant]

REACTIONS (4)
  - Myocardial ischaemia [Recovered/Resolved]
  - Cerebrovascular accident [Recovered/Resolved]
  - Nephropathy [Recovered/Resolved]
  - Blood glucose fluctuation [Recovered/Resolved]
